FAERS Safety Report 7594194-7 (Version None)
Quarter: 2011Q3

REPORT INFORMATION
  Report Type: 
  Country: None (occurrence: None)
  Receive Date: 20110706
  Receipt Date: 20110621
  Transmission Date: 20111222
  Serious: Yes (Other)
  Sender: FDA-Public Use
  Company Number: US-BAYER-2011-054401

PATIENT
  Age: 59 Year
  Sex: Male

DRUGS (6)
  1. PLAVIX [Suspect]
     Indication: CORONARY ARTERY DISEASE
     Dosage: 75 MG, QD
     Route: 048
     Dates: start: 20110401
  2. ATENOLOL [Concomitant]
  3. CALCIUM CARBONATE [Concomitant]
  4. ASPIRIN [Suspect]
     Dosage: DAILY DOSE 162 MG
  5. POTASSIUM [Concomitant]
  6. HYDROCHLOROTHIAZIDE [Concomitant]

REACTIONS (2)
  - RECTAL HAEMORRHAGE [None]
  - HAEMORRHAGE SUBCUTANEOUS [None]
